FAERS Safety Report 8098873-7 (Version None)
Quarter: 2012Q1

REPORT INFORMATION
  Report Type: 
  Country: None (occurrence: None)
  Receive Date: 20120129
  Receipt Date: 20110923
  Transmission Date: 20120608
  Serious: No
  Sender: FDA-Public Use
  Company Number: US-ABBOTT-11P-163-0857690-00

PATIENT
  Sex: Female
  Weight: 110.78 kg

DRUGS (4)
  1. ARAVA [Concomitant]
     Indication: RHEUMATOID ARTHRITIS
  2. HUMIRA [Suspect]
     Indication: RHEUMATOID ARTHRITIS
     Route: 058
     Dates: start: 20110301, end: 20110701
  3. HUMIRA [Suspect]
     Route: 058
     Dates: start: 20110701
  4. FOLIC ACID [Concomitant]
     Indication: VITAMIN SUPPLEMENTATION

REACTIONS (4)
  - CONTUSION [None]
  - ARTHRALGIA [None]
  - DRUG INEFFECTIVE [None]
  - PRURITUS [None]
